FAERS Safety Report 6916575-4 (Version None)
Quarter: 2010Q3

REPORT INFORMATION
  Report Type: 
  Country: None (occurrence: None)
  Receive Date: 20100805
  Receipt Date: 20100803
  Transmission Date: 20110219
  Serious: Yes (Hospitalization)
  Sender: FDA-Public Use
  Company Number: 2010SP026135

PATIENT
  Age: 36 Year
  Sex: Female
  Weight: 41 kg

DRUGS (5)
  1. FOLLISTIM [Suspect]
     Indication: IN VITRO FERTILISATION
     Dosage: 225 IU;SC
     Route: 058
     Dates: start: 20071108, end: 20071116
  2. SUPRECUR [Concomitant]
  3. PROGESTERONE [Concomitant]
  4. ESTRADERM [Concomitant]
  5. CHORIONIC GONADOTROPIN [Concomitant]

REACTIONS (1)
  - OVARIAN HAEMORRHAGE [None]
